FAERS Safety Report 21838696 (Version 3)
Quarter: 2023Q2

REPORT INFORMATION
  Report Type: Spontaneous
  Country: US (occurrence: US)
  Receive Date: 20230109
  Receipt Date: 20230525
  Transmission Date: 20230722
  Serious: No
  Sender: FDA-Public Use
  Company Number: US-SA-SAC20230106000798

PATIENT
  Age: 63 Year
  Sex: Female

DRUGS (3)
  1. DUPIXENT [Suspect]
     Active Substance: DUPILUMAB
     Indication: Dermatitis atopic
     Dosage: 600 MG, 1X
     Route: 058
     Dates: start: 20221215, end: 20221215
  2. DUPIXENT [Suspect]
     Active Substance: DUPILUMAB
     Dosage: 300 MG, Q15D
     Route: 058
     Dates: start: 202212
  3. DUPIXENT [Suspect]
     Active Substance: DUPILUMAB
     Dosage: 300 MG, QOW
     Route: 058
     Dates: start: 202301

REACTIONS (11)
  - Eye discharge [Unknown]
  - Eczema [Unknown]
  - COVID-19 [Not Recovered/Not Resolved]
  - Injection site haemorrhage [Unknown]
  - Eye pruritus [Recovering/Resolving]
  - Lacrimation increased [Unknown]
  - Condition aggravated [Unknown]
  - Eye irritation [Unknown]
  - Rash [Unknown]
  - Injection site bruising [Unknown]
  - Therapeutic response shortened [Unknown]

NARRATIVE: CASE EVENT DATE: 20230101
